FAERS Safety Report 10012769 (Version 1)
Quarter: 2014Q1

REPORT INFORMATION
  Report Type: Spontaneous
  Country: IN (occurrence: IN)
  Receive Date: 20140314
  Receipt Date: 20140314
  Transmission Date: 20141002
  Serious: Yes (Other)
  Sender: FDA-Public Use
  Company Number: CHPA2014IN003902

PATIENT
  Sex: Male

DRUGS (1)
  1. OTRIVIN [Suspect]
     Indication: NASAL CONGESTION
     Dosage: UNK UNK, QD
     Route: 045

REACTIONS (3)
  - Drug abuse [Unknown]
  - Incorrect drug administration duration [Unknown]
  - Drug ineffective [Unknown]
